FAERS Safety Report 6165203-7 (Version None)
Quarter: 2009Q2

REPORT INFORMATION
  Report Type: 
  Country: None (occurrence: None)
  Receive Date: 20090421
  Receipt Date: 20090406
  Transmission Date: 20091009
  Serious: Yes (Hospitalization, Other)
  Sender: FDA-Public Use
  Company Number: INT_00011_2009

PATIENT
  Age: 60 Year
  Sex: Female

DRUGS (13)
  1. CEFTRIAXONE [Suspect]
     Indication: URINARY TRACT INFECTION
     Dosage: (2 G QD INTRAVENOUS DRIP)
     Route: 041
  2. INTRAVENOUS FLUIDS [Suspect]
     Dosage: (DF)
  3. BIPHASIC INSULIN INJECTION [Concomitant]
  4. ISOPHANE INSULIN [Concomitant]
  5. AMLODIPINE [Concomitant]
  6. FUROSEMIDE [Concomitant]
  7. RAMIPRIL [Concomitant]
  8. PRAVASTATIN [Concomitant]
  9. ACETYLSALICYLIC ACID [Concomitant]
  10. NITROGLYCERIN [Concomitant]
  11. AMITRIPTLINE HYDROCHLORIDE TAB [Concomitant]
  12. ESOMEPRAZOLE [Concomitant]
  13. CARBAMAZEPINE [Concomitant]

REACTIONS (2)
  - HYPERGLYCAEMIA [None]
  - TOXIC ENCEPHALOPATHY [None]
